FAERS Safety Report 17815335 (Version 7)
Quarter: 2020Q3

REPORT INFORMATION
  Report Type: Spontaneous
  Country: SK (occurrence: SK)
  Receive Date: 20200522
  Receipt Date: 20200708
  Transmission Date: 20201102
  Serious: Yes (Hospitalization, Other)
  Sender: FDA-Public Use
  Company Number: NVSC2020SK140032

PATIENT
  Age: 31 Year
  Sex: Male

DRUGS (8)
  1. FUROSEMIDE. [Suspect]
     Active Substance: FUROSEMIDE
     Indication: SINUS ARRHYTHMIA
     Dosage: UNK(TITRATION)
     Route: 065
     Dates: start: 201904, end: 2019
  2. PERINDOPRIL [Suspect]
     Active Substance: PERINDOPRIL
     Indication: SINUS TACHYCARDIA
  3. BISOPROLOL [Suspect]
     Active Substance: BISOPROLOL
     Indication: SINUS TACHYCARDIA
     Dosage: UNK
     Route: 065
     Dates: start: 201904, end: 2019
  4. BISOPROLOL [Suspect]
     Active Substance: BISOPROLOL
     Indication: SINUS ARRHYTHMIA
  5. FUROSEMIDE. [Suspect]
     Active Substance: FUROSEMIDE
     Indication: SINUS TACHYCARDIA
     Dosage: UNK THE DOSAGE OF DIURETICS WAS TITRATED
     Route: 065
  6. EPLERENONE. [Suspect]
     Active Substance: EPLERENONE
     Indication: SINUS ARRHYTHMIA
     Dosage: UNK
     Route: 065
     Dates: start: 201904, end: 2019
  7. EPLERENONE. [Suspect]
     Active Substance: EPLERENONE
     Indication: SINUS TACHYCARDIA
  8. PERINDOPRIL [Suspect]
     Active Substance: PERINDOPRIL
     Indication: SINUS ARRHYTHMIA
     Dosage: UNK
     Route: 065
     Dates: start: 201904, end: 2019

REACTIONS (9)
  - Vertigo [Unknown]
  - Loss of consciousness [Unknown]
  - Condition aggravated [Recovering/Resolving]
  - Renal impairment [Recovered/Resolved]
  - Product use in unapproved indication [Unknown]
  - Dizziness [Recovering/Resolving]
  - Hypotension [Recovering/Resolving]
  - Circulatory collapse [Recovering/Resolving]
  - Renal disorder [Unknown]

NARRATIVE: CASE EVENT DATE: 2019
